FAERS Safety Report 16860721 (Version 1)
Quarter: 2019Q3

REPORT INFORMATION
  Report Type: Report from Study
  Country: FR (occurrence: FR)
  Receive Date: 20190927
  Receipt Date: 20190927
  Transmission Date: 20191005
  Serious: Yes (Death, Hospitalization)
  Sender: FDA-Public Use
  Company Number: FR-ROCHE-2311491

PATIENT
  Age: 64 Year
  Sex: Male

DRUGS (2)
  1. VINORELBINE [Suspect]
     Active Substance: VINORELBINE TARTRATE
     Indication: NON-SMALL CELL LUNG CANCER
     Dosage: DATE OF LAST ADMINISTRATION OF STUDY DRUGS WSA ON 27/MAR/2019 (CYCLE 2 DAY 1).
     Route: 065
     Dates: start: 20190306
  2. ATEZOLIZUMAB. [Suspect]
     Active Substance: ATEZOLIZUMAB
     Indication: NON-SMALL CELL LUNG CANCER
     Dosage: DATE OF LAST ADMINISTRATION OF STUDY DRUGS WSA ON 27/MAR/2019 (CYCLE 2 DAY 1).
     Route: 041
     Dates: start: 20190306

REACTIONS (2)
  - Cancer pain [Fatal]
  - Lung neoplasm malignant [Fatal]

NARRATIVE: CASE EVENT DATE: 20190328
